FAERS Safety Report 12074131 (Version 3)
Quarter: 2016Q2

REPORT INFORMATION
  Report Type: Spontaneous
  Country: US (occurrence: US)
  Receive Date: 20160212
  Receipt Date: 20160401
  Transmission Date: 20160815
  Serious: Yes (Life-Threatening, Hospitalization, Other)
  Sender: FDA-Public Use
  Company Number: US-BAYER-2016-025135

PATIENT
  Age: 25 Year
  Sex: Female
  Weight: 61.22 kg

DRUGS (3)
  1. MIRENA [Suspect]
     Active Substance: LEVONORGESTREL
     Indication: CONTRACEPTION
     Dosage: 20 MCG/24HR, CONT
     Route: 015
     Dates: start: 20091123, end: 20130429
  2. DICLOXACILLIN [Concomitant]
     Active Substance: DICLOXACILLIN
  3. PRENATAL VITAMINS [Concomitant]
     Active Substance: VITAMINS

REACTIONS (7)
  - Uterine perforation [None]
  - Abdominal pain [None]
  - Pregnancy with contraceptive device [None]
  - Device issue [None]
  - Device issue [None]
  - Infection [None]
  - Drug ineffective [None]

NARRATIVE: CASE EVENT DATE: 2009
